FAERS Safety Report 6978864-7 (Version None)
Quarter: 2010Q3

REPORT INFORMATION
  Report Type: 
  Country: None (occurrence: None)
  Receive Date: 20100913
  Receipt Date: 20100903
  Transmission Date: 20110219
  Serious: Yes (Other)
  Sender: FDA-Public Use
  Company Number: US-SANOFI-AVENTIS-2010SA053935

PATIENT
  Age: 79 Year
  Sex: Male

DRUGS (2)
  1. LANTUS [Suspect]
     Dosage: DOSE:32 UNIT(S)
     Route: 058
     Dates: start: 20070101
  2. SOLOSTAR [Suspect]
     Route: 058
     Dates: start: 20070101

REACTIONS (2)
  - BLOOD GLUCOSE INCREASED [None]
  - NEOPLASM MALIGNANT [None]
